FAERS Safety Report 16391711 (Version 1)
Quarter: 2019Q2

REPORT INFORMATION
  Report Type: Spontaneous
  Country: AU (occurrence: AU)
  Receive Date: 20190605
  Receipt Date: 20190605
  Transmission Date: 20190711
  Serious: Yes (Other)
  Sender: FDA-Public Use
  Company Number: AU-REGENERON PHARMACEUTICALS, INC.-2019-34927

PATIENT

DRUGS (6)
  1. AFLIBERCEPT IAI [Suspect]
     Active Substance: AFLIBERCEPT
     Dosage: 6 TH EYLEA DOSE ( EXTEND TO 12 WEEKS)
     Dates: start: 20170518, end: 20170518
  2. AFLIBERCEPT IAI [Suspect]
     Active Substance: AFLIBERCEPT
     Indication: PRODUCT USED FOR UNKNOWN INDICATION
     Dosage: FIRST EYLEA DOSE
     Dates: start: 20160727, end: 20160727
  3. AFLIBERCEPT IAI [Suspect]
     Active Substance: AFLIBERCEPT
     Dosage: 4 TH EYLEA DOSE ( EXTEND TO 10 WEEKS)
     Dates: start: 20170127, end: 20170127
  4. AFLIBERCEPT IAI [Suspect]
     Active Substance: AFLIBERCEPT
     Dosage: 8 TH EYLEA DOSE ( EXTEND TO 10 WEEKS)
     Dates: start: 20170905, end: 20170905
  5. AFLIBERCEPT IAI [Suspect]
     Active Substance: AFLIBERCEPT
     Dosage: 12 TH EYLEA DOSE ( EXTEND TO 14 WEEKS)
     Dates: start: 201807
  6. AFLIBERCEPT IAI [Suspect]
     Active Substance: AFLIBERCEPT
     Dosage: 3 RD EYLEA DOSE ( EXTEND TO 8 WEEKS)
     Dates: start: 20161007, end: 20161007

REACTIONS (2)
  - Dry age-related macular degeneration [Unknown]
  - Visual acuity reduced [Unknown]

NARRATIVE: CASE EVENT DATE: 201807
